FAERS Safety Report 18623500 (Version 1)
Quarter: 2020Q4

REPORT INFORMATION
  Report Type: Spontaneous
  Country: US (occurrence: US)
  Receive Date: 20201216
  Receipt Date: 20201216
  Transmission Date: 20210114
  Serious: Yes (Other)
  Sender: FDA-Public Use
  Company Number: US-GLAXOSMITHKLINE-US2020246655

PATIENT
  Age: 75 Year
  Sex: Female

DRUGS (2)
  1. GAVISCON [Suspect]
     Active Substance: ALUMINUM HYDROXIDE\MAGNESIUM CARBONATE
     Indication: DYSPEPSIA
     Dosage: UNK
  2. GAVISCON REGULAR STRENGTH [Suspect]
     Active Substance: ALUMINUM HYDROXIDE\MAGNESIUM TRISILICATE
     Indication: DYSPEPSIA
     Dosage: UNK

REACTIONS (2)
  - Headache [Unknown]
  - Neoplasm malignant [Unknown]
